FAERS Safety Report 11681310 (Version 2)
Quarter: 2015Q4

REPORT INFORMATION
  Report Type: Spontaneous
  Country: US (occurrence: US)
  Receive Date: 20151027
  Receipt Date: 20151110
  Transmission Date: 20160304
  Serious: No
  Sender: FDA-Public Use
  Company Number: US-ELI_LILLY_AND_COMPANY-US201007002667

PATIENT
  Age: 79 Year
  Sex: Female

DRUGS (2)
  1. FORTEO [Suspect]
     Active Substance: TERIPARATIDE
     Indication: OSTEOPOROSIS
     Dosage: 20 UG, DAILY (1/D)
     Dates: start: 201004
  2. FORTEO [Suspect]
     Active Substance: TERIPARATIDE
     Dosage: 20 UG, QD
     Dates: end: 20111106

REACTIONS (18)
  - Muscle tightness [Unknown]
  - Dysgeusia [Unknown]
  - Scratch [Unknown]
  - Nasopharyngitis [Recovering/Resolving]
  - Contusion [Unknown]
  - Intentional product misuse [Not Recovered/Not Resolved]
  - Skin haemorrhage [Unknown]
  - Crepitations [Unknown]
  - Fatigue [Recovering/Resolving]
  - Influenza like illness [Recovering/Resolving]
  - Malaise [Not Recovered/Not Resolved]
  - Rhinorrhoea [Recovering/Resolving]
  - Joint lock [Unknown]
  - Pruritus [Unknown]
  - Cough [Recovering/Resolving]
  - Sinusitis [Recovering/Resolving]
  - Headache [Recovering/Resolving]
  - Muscle spasms [Unknown]

NARRATIVE: CASE EVENT DATE: 2010
